FAERS Safety Report 25213259 (Version 1)
Quarter: 2025Q2

REPORT INFORMATION
  Report Type: Spontaneous
  Country: US (occurrence: US)
  Receive Date: 20250418
  Receipt Date: 20250418
  Transmission Date: 20250717
  Serious: Yes (Hospitalization, Other)
  Sender: MYLAN
  Company Number: US-MYLANLABS-2025M1032282

PATIENT
  Age: 10 Year
  Sex: Female

DRUGS (1)
  1. IMATINIB [Suspect]
     Active Substance: IMATINIB
     Indication: Chronic myeloid leukaemia
     Dosage: 400 MILLIGRAM, QD

REACTIONS (4)
  - Atypical femur fracture [Recovering/Resolving]
  - Osteonecrosis [Recovered/Resolved]
  - Spondylolysis [Recovering/Resolving]
  - Foot fracture [Recovering/Resolving]
